FAERS Safety Report 9267871 (Version 1)
Quarter: 2013Q2

REPORT INFORMATION
  Report Type: Spontaneous
  Country: US (occurrence: US)
  Receive Date: 20130502
  Receipt Date: 20130502
  Transmission Date: 20140414
  Serious: No
  Sender: FDA-Public Use
  Company Number: US-ALEXION-A201201052

PATIENT
  Age: 36 Year
  Sex: Female

DRUGS (1)
  1. SOLIRIS 300MG [Suspect]
     Indication: PAROXYSMAL NOCTURNAL HAEMOGLOBINURIA
     Dosage: UNK
     Route: 042

REACTIONS (8)
  - Dyspnoea [Unknown]
  - Respiratory tract infection [Unknown]
  - Pyrexia [Unknown]
  - Nasal congestion [Unknown]
  - Cough [Unknown]
  - Fatigue [Unknown]
  - Palpitations [Unknown]
  - Haemoglobin decreased [Unknown]
